FAERS Safety Report 24579989 (Version 1)
Quarter: 2024Q4

REPORT INFORMATION
  Report Type: Other
  Country: US (occurrence: US)
  Receive Date: 20241105
  Receipt Date: 20241105
  Transmission Date: 20250114
  Serious: Yes (Hospitalization)
  Sender: APTAPHARMA INC.
  Company Number: US-AptaPharma Inc.-2164485

PATIENT
  Age: 73 Year
  Sex: Female

DRUGS (10)
  1. FLUOXETINE HYDROCHLORIDE [Suspect]
     Active Substance: FLUOXETINE HYDROCHLORIDE
     Indication: Product used for unknown indication
  2. LEVOTHYROXINE [Concomitant]
     Active Substance: LEVOTHYROXINE
  3. ZOPICLONE [Concomitant]
     Active Substance: ZOPICLONE
  4. VENLAFAXINE [Concomitant]
     Active Substance: VENLAFAXINE HYDROCHLORIDE
  5. ALPRAZOLAM [Concomitant]
     Active Substance: ALPRAZOLAM
  6. MIRTAZAPINE [Concomitant]
     Active Substance: MIRTAZAPINE
  7. TEMAZEPAM [Concomitant]
     Active Substance: TEMAZEPAM
  8. NITRAZEPAM [Concomitant]
     Active Substance: NITRAZEPAM
  9. ESCITALOPRAM [Concomitant]
     Active Substance: ESCITALOPRAM OXALATE
  10. RAMIPRIL [Concomitant]
     Active Substance: RAMIPRIL

REACTIONS (1)
  - Intentional overdose [Unknown]
